FAERS Safety Report 13047452 (Version 1)
Quarter: 2016Q4

REPORT INFORMATION
  Report Type: Spontaneous
  Country: US (occurrence: US)
  Receive Date: 20161220
  Receipt Date: 20161220
  Transmission Date: 20170207
  Serious: No
  Sender: FDA-Public Use
  Company Number: US-ELI_LILLY_AND_COMPANY-US201612006553

PATIENT
  Age: 77 Year
  Sex: Male

DRUGS (3)
  1. TOUJEO [Concomitant]
     Active Substance: INSULIN GLARGINE
     Dosage: 44 U, EACH EVENING
  2. CRESTOR [Concomitant]
     Active Substance: ROSUVASTATIN CALCIUM
     Dosage: 6 DF, QD
  3. HUMALOG [Suspect]
     Active Substance: INSULIN LISPRO
     Indication: TYPE 2 DIABETES MELLITUS
     Dosage: 16 U, SLIDING SCALE
     Route: 065
     Dates: start: 20161201

REACTIONS (3)
  - Glycosylated haemoglobin increased [Unknown]
  - Drug ineffective [Unknown]
  - Blood glucose increased [Unknown]

NARRATIVE: CASE EVENT DATE: 20161201
